FAERS Safety Report 13106326 (Version 2)
Quarter: 2017Q1

REPORT INFORMATION
  Report Type: Spontaneous
  Country: US (occurrence: US)
  Receive Date: 20170111
  Receipt Date: 20170113
  Transmission Date: 20170428
  Serious: No
  Sender: FDA-Public Use
  Company Number: US-BAYER-2017-006063

PATIENT
  Age: 44 Year
  Sex: Male

DRUGS (4)
  1. LEVITRA [Suspect]
     Active Substance: VARDENAFIL HYDROCHLORIDE TRIHYDRATE
     Indication: IMMUNE ENHANCEMENT THERAPY
     Dosage: TWICE EVERY OTHER WEEK
     Route: 048
  2. LEVITRA [Suspect]
     Active Substance: VARDENAFIL HYDROCHLORIDE TRIHYDRATE
     Indication: IMMUNE ENHANCEMENT THERAPY
     Dosage: ONE AND HALF TABLET
  3. LEVITRA [Suspect]
     Active Substance: VARDENAFIL HYDROCHLORIDE TRIHYDRATE
     Indication: IMMUNE ENHANCEMENT THERAPY
     Dosage: TWO TABLETS AT ONE TIME
  4. FENBENDAZOLE [Concomitant]
     Dosage: ONCE OR TWICE PER DAY DEPENDING ON THE PAIN

REACTIONS (2)
  - Intentional product misuse [None]
  - Drug ineffective [None]

NARRATIVE: CASE EVENT DATE: 20161223
